FAERS Safety Report 8273309-1 (Version None)
Quarter: 2012Q2

REPORT INFORMATION
  Report Type: 
  Country: None (occurrence: None)
  Receive Date: 20120411
  Receipt Date: 20120327
  Transmission Date: 20120825
  Serious: Yes (Death)
  Sender: FDA-Public Use
  Company Number: PHEH2012US005914

PATIENT
  Sex: Male

DRUGS (1)
  1. EXJADE [Suspect]
     Indication: APLASTIC ANAEMIA
     Dosage: 1 DF, QD
     Route: 048

REACTIONS (1)
  - DEATH [None]
